FAERS Safety Report 16577437 (Version 1)
Quarter: 2019Q3

REPORT INFORMATION
  Report Type: Spontaneous
  Country: US (occurrence: US)
  Receive Date: 20190716
  Receipt Date: 20190716
  Transmission Date: 20191004
  Serious: Yes (Other)
  Sender: FDA-Public Use
  Company Number: US-PFIZER INC-2019300873

PATIENT
  Age: 58 Year
  Sex: Female
  Weight: 52.15 kg

DRUGS (2)
  1. GABAPENTIN. [Suspect]
     Active Substance: GABAPENTIN
     Dosage: UNK
     Route: 048
  2. GABAPENTIN. [Suspect]
     Active Substance: GABAPENTIN
     Dosage: 1200 MG, 2X/DAY (2 TABS, BID)
     Route: 048

REACTIONS (7)
  - Pain [Recovering/Resolving]
  - Fall [Unknown]
  - Concussion [Unknown]
  - Head injury [Unknown]
  - Limb injury [Unknown]
  - Animal bite [Unknown]
  - Prescribed overdose [Unknown]

NARRATIVE: CASE EVENT DATE: 20190614
